FAERS Safety Report 9019838 (Version 1)
Quarter: 2013Q1

REPORT INFORMATION
  Report Type: Spontaneous
  Country: IN (occurrence: IN)
  Receive Date: 20130118
  Receipt Date: 20130118
  Transmission Date: 20140127
  Serious: Yes (Other)
  Sender: FDA-Public Use
  Company Number: IN-PFIZER INC-2012262173

PATIENT
  Age: 65 Year
  Sex: Female

DRUGS (2)
  1. HYDROCHLOROTHIAZIDE [Suspect]
     Dosage: UNK
  2. DEXAMETHASONE SODIUM PHOSPHATE [Suspect]
     Indication: ENCEPHALOPATHY
     Dosage: 8 MG, 3X/DAY
     Route: 042

REACTIONS (10)
  - Hyponatraemia [Recovered/Resolved]
  - Hypokalaemia [Recovered/Resolved]
  - Hyperglycaemia [Unknown]
  - Loss of consciousness [None]
  - Blood pressure systolic increased [None]
  - Hepatic encephalopathy [None]
  - Ammonia increased [None]
  - Blood calcium decreased [None]
  - Anti-thyroid antibody positive [None]
  - Vomiting [None]
